FAERS Safety Report 7102510-5 (Version None)
Quarter: 2010Q4

REPORT INFORMATION
  Report Type: 
  Country: None (occurrence: None)
  Receive Date: 20101115
  Receipt Date: 20101108
  Transmission Date: 20110411
  Serious: Yes (Life-Threatening)
  Sender: FDA-Public Use
  Company Number: JP-JNJFOC-20101100191

PATIENT
  Sex: Female

DRUGS (10)
  1. FINIBAX [Suspect]
     Indication: VENTRICULAR DRAINAGE
     Route: 041
  2. FINIBAX [Suspect]
     Route: 041
  3. FINIBAX [Suspect]
     Indication: MENINGITIS BACTERIAL
     Route: 041
  4. FINIBAX [Suspect]
     Route: 041
  5. VANCOMYCIN HYDROCHLORIDE [Concomitant]
     Indication: MENINGITIS BACTERIAL
     Route: 042
  6. TAKEPRON [Concomitant]
     Indication: HYPERTENSION
     Route: 048
  7. AMLODIPINE [Concomitant]
     Indication: HYPERTENSION
     Route: 048
  8. CANDESARTAN + HYDROCHLOROTHIAZIDE [Concomitant]
     Indication: HYPERTENSION
     Route: 065
  9. MYSTAN [Concomitant]
     Indication: CONVULSION
     Route: 048
  10. CHINESE HERBAL MEDICINE [Concomitant]
     Indication: CONSTIPATION
     Route: 048

REACTIONS (2)
  - GRANULOCYTE COUNT DECREASED [None]
  - OFF LABEL USE [None]
